FAERS Safety Report 25402670 (Version 1)
Quarter: 2025Q2

REPORT INFORMATION
  Report Type: Spontaneous
  Country: US (occurrence: US)
  Receive Date: 20250605
  Receipt Date: 20250605
  Transmission Date: 20250716
  Serious: No
  Sender: PFIZER
  Company Number: US-PFIZER INC-202500114157

PATIENT
  Age: 30 Year
  Sex: Male

DRUGS (3)
  1. CIBINQO [Suspect]
     Active Substance: ABROCITINIB
     Indication: Dermatitis atopic
     Dosage: 100 MG, 1X/DAY
  2. CIBINQO [Suspect]
     Active Substance: ABROCITINIB
     Dosage: 100 MG, 2X/DAY
  3. CIBINQO [Suspect]
     Active Substance: ABROCITINIB
     Dosage: 200 MG, 1X/DAY
     Route: 048

REACTIONS (3)
  - Fatigue [Unknown]
  - Condition aggravated [Unknown]
  - Off label use [Unknown]
